FAERS Safety Report 21463587 (Version 1)
Quarter: 2022Q4

REPORT INFORMATION
  Report Type: Spontaneous
  Country: GR (occurrence: GR)
  Receive Date: 20221017
  Receipt Date: 20221017
  Transmission Date: 20230113
  Serious: Yes (Life-Threatening, Other)
  Sender: FDA-Public Use
  Company Number: GR-SUN PHARMACEUTICAL INDUSTRIES LTD-2022RR-359165

PATIENT
  Age: 25 Year
  Sex: Male
  Weight: 75 kg

DRUGS (4)
  1. EZETIMIBE [Suspect]
     Active Substance: EZETIMIBE
     Indication: Type IIa hyperlipidaemia
     Dosage: 10 MG ONCE A DAY (1X1)
     Route: 065
     Dates: start: 20200401, end: 20210804
  2. PRAVASTATIN [Suspect]
     Active Substance: PRAVASTATIN
     Indication: Type IIa hyperlipidaemia
     Dosage: 40 MG ONCE A DAY (1X1)
     Route: 048
     Dates: start: 20200401, end: 20200630
  3. Atorvastatin Ezetimibe [Concomitant]
     Indication: Type IIa hyperlipidaemia
     Dosage: (10MG + 40MG) ONCE A DAY
     Route: 065
     Dates: start: 20210810, end: 20210910
  4. ROSUVASTATIN [Concomitant]
     Active Substance: ROSUVASTATIN
     Indication: Type IIa hyperlipidaemia
     Dosage: 40 MG ONCE A DAY (1X1)
     Route: 048
     Dates: start: 20201015, end: 20210804

REACTIONS (9)
  - Blood creatine phosphokinase increased [Recovered/Resolved]
  - Myalgia [Recovered/Resolved]
  - Myalgia [Recovered/Resolved]
  - Blood creatine phosphokinase increased [Recovered/Resolved]
  - Myalgia [Recovered/Resolved]
  - Myalgia [Recovered/Resolved]
  - Blood creatine phosphokinase increased [Recovered/Resolved]
  - Blood creatine phosphokinase increased [Recovered/Resolved]
  - Hepatic enzyme abnormal [Recovered/Resolved]

NARRATIVE: CASE EVENT DATE: 20200401
